FAERS Safety Report 7344120 (Version 3)
Quarter: 2014Q1

REPORT INFORMATION
  Report Type: Spontaneous
  Country: US (occurrence: US)
  Receive Date: 20100405
  Receipt Date: 20140121
  Transmission Date: 20141002
  Serious: Yes (Hospitalization)
  Sender: FDA-Public Use
  Company Number: US-JNJFOC-20100307912

PATIENT
  Age: 29 Day
  Sex: 0

DRUGS (1)
  1. UNSPECIFIED FENTANYL TRANSDERMAL SYSTEM [Suspect]
     Indication: PRODUCT USED FOR UNKNOWN INDICATION

REACTIONS (6)
  - Accidental exposure to product [Unknown]
  - Intentional drug misuse [Not Recovered/Not Resolved]
  - Unresponsive to stimuli [Recovered/Resolved]
  - Drug screen positive [Unknown]
  - Lethargy [Recovered/Resolved]
  - Product quality issue [Unknown]
